FAERS Safety Report 7708379-X (Version None)
Quarter: 2011Q3

REPORT INFORMATION
  Report Type: 
  Country: None (occurrence: None)
  Receive Date: 20110825
  Receipt Date: 20101213
  Transmission Date: 20111222
  Serious: No
  Sender: FDA-Public Use
  Company Number: US-BAYER-2010-008342

PATIENT
  Age: 20 Year
  Sex: Female

DRUGS (1)
  1. MIRENA [Suspect]
     Dosage: UNK
     Dates: start: 20081001

REACTIONS (4)
  - OLIGOMENORRHOEA [None]
  - ABDOMINAL PAIN UPPER [None]
  - MENSTRUAL DISORDER [None]
  - MENORRHAGIA [None]
